FAERS Safety Report 5675165-4 (Version None)
Quarter: 2008Q1

REPORT INFORMATION
  Report Type: 
  Country: None (occurrence: None)
  Receive Date: 20080320
  Receipt Date: 20080310
  Transmission Date: 20080703
  Serious: Yes (Other)
  Sender: FDA-Public Use
  Company Number: US-SANOFI-SYNTHELABO-A03200800980

PATIENT
  Sex: Female

DRUGS (2)
  1. ALCOHOL [Suspect]
     Indication: DRUG USE FOR UNKNOWN INDICATION
     Route: 065
  2. AMBIEN [Suspect]
     Indication: DRUG USE FOR UNKNOWN INDICATION
     Dosage: ZOLPIDEM WAS ALLEGEDLY SLIPPED INTO ALCOHOLIC BEVERAGE
     Route: 048

REACTIONS (5)
  - APHASIA [None]
  - INTENTIONAL DRUG MISUSE [None]
  - MENTAL IMPAIRMENT [None]
  - PARALYSIS [None]
  - VOMITING [None]
